FAERS Safety Report 14187763 (Version 1)
Quarter: 2017Q4

REPORT INFORMATION
  Report Type: Spontaneous
  Country: US (occurrence: None)
  Receive Date: 20171114
  Receipt Date: 20171114
  Transmission Date: 20180321
  Serious: Yes (Other)
  Sender: FDA-Public Use
  Company Number: None

PATIENT
  Age: 85 Year
  Sex: Female
  Weight: 60.78 kg

DRUGS (11)
  1. VALSARTAN. [Concomitant]
     Active Substance: VALSARTAN
  2. RED YEAST RICE [Concomitant]
     Active Substance: DIETARY SUPPLEMENT
  3. CALTRATE 600+D [Concomitant]
  4. PREDNISOLONE. [Concomitant]
     Active Substance: PREDNISOLONE
  5. LATANOPROST. [Concomitant]
     Active Substance: LATANOPROST
  6. OMEPRAZOLE. [Concomitant]
     Active Substance: OMEPRAZOLE
  7. MYRBETRIQ [Concomitant]
     Active Substance: MIRABEGRON
  8. GARLIC GEL [Concomitant]
  9. PROLIA [Suspect]
     Active Substance: DENOSUMAB
     Indication: OSTEOPOROSIS
     Dosage: 1 INJECTION 2X YEARLY
     Dates: start: 20140420, end: 20170425
  10. CENTRUM [Concomitant]
     Active Substance: VITAMINS
  11. TRAMADOL. [Concomitant]
     Active Substance: TRAMADOL

REACTIONS (7)
  - Bone pain [None]
  - Swelling face [None]
  - Cystitis [None]
  - Neck pain [None]
  - Arthralgia [None]
  - Groin pain [None]
  - Pain in extremity [None]

NARRATIVE: CASE EVENT DATE: 20140420
